FAERS Safety Report 5474800-3 (Version None)
Quarter: 2007Q4

REPORT INFORMATION
  Report Type: 
  Country: None (occurrence: None)
  Receive Date: 20071002
  Receipt Date: 20070921
  Transmission Date: 20080405
  Serious: Yes (Hospitalization)
  Sender: FDA-Public Use
  Company Number: B0489222A

PATIENT
  Age: 42 Year
  Sex: Male

DRUGS (3)
  1. AUGMENTIN '125' [Suspect]
     Route: 048
     Dates: end: 20061220
  2. ASPIRIN [Suspect]
     Route: 048
     Dates: end: 20061220
  3. LANSOPRAZOLE [Concomitant]

REACTIONS (9)
  - ANAPHYLACTIC SHOCK [None]
  - BLOOD PRESSURE DECREASED [None]
  - DYSPNOEA [None]
  - GENERALISED ERYTHEMA [None]
  - LARYNGEAL DYSPNOEA [None]
  - LARYNGEAL OEDEMA [None]
  - LIP OEDEMA [None]
  - PYREXIA [None]
  - SINUS TACHYCARDIA [None]
